FAERS Safety Report 5143465-2 (Version None)
Quarter: 2006Q4

REPORT INFORMATION
  Report Type: 
  Country: None (occurrence: None)
  Receive Date: 20061103
  Receipt Date: 20061020
  Transmission Date: 20070319
  Serious: Yes (Other)
  Sender: FDA-Public Use
  Company Number: US-ELI_LILLY_AND_COMPANY-US200610003946

PATIENT
  Sex: Female

DRUGS (8)
  1. CYMBALTA [Suspect]
     Indication: ANXIETY
     Dosage: 60 MG, EACH MORNING
     Dates: start: 20050101
  2. NEURONTIN [Concomitant]
  3. XANAX                                   /USA/ [Concomitant]
  4. TRAZODIL [Concomitant]
  5. LEVONORGESTREL AND ETHINYL ESTRADIOL [Concomitant]
     Indication: ORAL CONTRACEPTION
  6. ZYRTEC [Concomitant]
  7. GUAIFENESIN [Concomitant]
  8. ULTRAM [Concomitant]
     Dosage: UNK UNK, AS NEEDED

REACTIONS (4)
  - HAEMANGIOMA [None]
  - LIBIDO DECREASED [None]
  - MALAISE [None]
  - PYREXIA [None]
